FAERS Safety Report 24061553 (Version 2)
Quarter: 2024Q3

REPORT INFORMATION
  Report Type: Spontaneous
  Country: FR (occurrence: FR)
  Receive Date: 20240708
  Receipt Date: 20240730
  Transmission Date: 20241017
  Serious: No
  Sender: TOLMAR
  Company Number: FR-TOLMAR, INC.-24FR050740

PATIENT
  Sex: Male

DRUGS (2)
  1. ELIGARD [Suspect]
     Active Substance: LEUPROLIDE ACETATE
     Indication: Occupational exposure to product
     Dosage: 22.5 MILLIGRAM
     Dates: start: 202403
  2. ELIGARD [Suspect]
     Active Substance: LEUPROLIDE ACETATE
     Indication: Occupational exposure to product
     Dosage: 45 MILLIGRAM

REACTIONS (2)
  - Occupational exposure to product [Unknown]
  - Device leakage [Unknown]
